FAERS Safety Report 5570222-5 (Version None)
Quarter: 2007Q4

REPORT INFORMATION
  Report Type: 
  Country: None (occurrence: None)
  Receive Date: 20071220
  Receipt Date: 20071211
  Transmission Date: 20080405
  Serious: Yes (Death)
  Sender: FDA-Public Use
  Company Number: DK-PFIZER INC-2007103983

PATIENT
  Age: 67 Year
  Sex: Male

DRUGS (4)
  1. GENOTROPIN [Suspect]
     Indication: HYPOPITUITARISM
     Route: 058
  2. HYDROCORTISONE [Concomitant]
     Dosage: DAILY DOSE:20MG-FREQ:DAILY
  3. LEVOTHYROXINE SODIUM [Concomitant]
     Dosage: DAILY DOSE:50MCG
  4. TESTOSTERONE [Concomitant]
     Dosage: DAILY DOSE:135MG-FREQ:EVERY THIRD WEEK

REACTIONS (1)
  - DEATH [None]
